FAERS Safety Report 8438101-3 (Version None)
Quarter: 2012Q2

REPORT INFORMATION
  Report Type: 
  Country: None (occurrence: None)
  Receive Date: 20120614
  Receipt Date: 20120601
  Transmission Date: 20120825
  Serious: Yes (Other)
  Sender: FDA-Public Use
  Company Number: GB-MYLANLABS-2012S1011522

PATIENT
  Age: 59 Year
  Sex: Female
  Weight: 117 kg

DRUGS (7)
  1. OLANZAPINE [Concomitant]
     Dates: start: 20120228, end: 20120425
  2. CLOPIDOGREL [Suspect]
     Indication: ACUTE CORONARY SYNDROME
  3. OLANZAPINE [Concomitant]
     Indication: PRODUCT USED FOR UNKNOWN INDICATION
     Dates: start: 20120501
  4. THIAMINE [Concomitant]
     Indication: PRODUCT USED FOR UNKNOWN INDICATION
     Dates: start: 20120501
  5. CITALOPRAM [Concomitant]
     Dates: start: 20120206, end: 20120425
  6. CITALOPRAM [Concomitant]
     Indication: PRODUCT USED FOR UNKNOWN INDICATION
     Dates: start: 20120501
  7. THIAMINE [Concomitant]
     Dates: start: 20120228, end: 20120424

REACTIONS (1)
  - DRUG RASH WITH EOSINOPHILIA AND SYSTEMIC SYMPTOMS [None]
